FAERS Safety Report 9949116 (Version 3)
Quarter: 2014Q3

REPORT INFORMATION
  Report Type: Spontaneous
  Country: US (occurrence: None)
  Receive Date: 20140122
  Receipt Date: 20140722
  Transmission Date: 20150326
  Serious: No
  Sender: FDA-Public Use
  Company Number: AEGR000200

PATIENT
  Age: 83 Year
  Sex: Female
  Weight: 68 kg

DRUGS (13)
  1. CALCIUM (CALCIUM) [Concomitant]
     Active Substance: CALCIUM
  2. COZAAR (LOSARTAN POTASSIUM) [Concomitant]
  3. SPIRIVA [Concomitant]
     Active Substance: TIOTROPIUM BROMIDE MONOHYDRATE
  4. SYNTHROID [Concomitant]
     Active Substance: LEVOTHYROXINE SODIUM
  5. COLESTID (COLESTIPOL HYDROCHLORIDE) [Concomitant]
  6. FISH OIL (FISH OIL) [Concomitant]
     Active Substance: FISH OIL
  7. COQ10 (UBIDECARENONE) [Concomitant]
     Active Substance: UBIDECARENONE
  8. GINKGO BILOBA [Concomitant]
     Active Substance: GINKGO
  9. JUXTAPID [Suspect]
     Active Substance: LOMITAPIDE MESYLATE
     Indication: BLOOD CHOLESTEROL ABNORMAL
     Route: 048
     Dates: start: 20130726, end: 201402
  10. ASPIRIN (ACETYLSALICYLIC ACID) [Concomitant]
     Active Substance: ASPIRIN
  11. ATENOLOL (ATENOLOL) [Concomitant]
     Active Substance: ATENOLOL
  12. SINEMET (CARBIDOPA, LEVODOPA) [Concomitant]
  13. FOLIC ACID (FOLIC ACID) [Concomitant]
     Active Substance: FOLIC ACID

REACTIONS (2)
  - Muscle spasms [None]
  - Off label use [None]

NARRATIVE: CASE EVENT DATE: 2013
